FAERS Safety Report 25033353 (Version 2)
Quarter: 2025Q3

REPORT INFORMATION
  Report Type: Spontaneous
  Country: EU (occurrence: EU)
  Receive Date: 20250303
  Receipt Date: 20250803
  Transmission Date: 20251021
  Serious: Yes (Other)
  Sender: ALEXION PHARMACEUTICALS
  Company Number: None

PATIENT
  Age: 79 Year
  Sex: Female
  Weight: 75 kg

DRUGS (5)
  1. FASLODEX [Suspect]
     Active Substance: FULVESTRANT
     Dates: start: 20180320, end: 20230202
  2. FASLODEX [Suspect]
     Active Substance: FULVESTRANT
  3. CALCIUM CARBONATE\CHOLECALCIFEROL [Concomitant]
     Active Substance: CALCIUM CARBONATE\CHOLECALCIFEROL
     Indication: Osteoporosis
     Dosage: 1 DOSAGE FORM, QD
     Route: 065
     Dates: start: 20101001
  4. Famotidina Cinfa [Concomitant]
     Indication: Gastric ulcer
     Dosage: 20 DOSAGE FORM, QD
     Route: 065
     Dates: start: 20161001
  5. LEVOTHYROXINE SODIUM [Concomitant]
     Active Substance: LEVOTHYROXINE SODIUM
     Indication: Hypothyroidism

REACTIONS (5)
  - Ear pruritus [Recovering/Resolving]
  - Ear discomfort [Recovering/Resolving]
  - Aphthous ulcer [Recovering/Resolving]
  - Pain [Recovering/Resolving]
  - Parotitis [Recovered/Resolved]

NARRATIVE: CASE EVENT DATE: 20200122
